FAERS Safety Report 23800704 (Version 1)
Quarter: 2024Q2

REPORT INFORMATION
  Report Type: Report from Study
  Country: FR (occurrence: None)
  Receive Date: 20240430
  Receipt Date: 20240430
  Transmission Date: 20240716
  Serious: Yes (Other)
  Sender: FDA-Public Use
  Company Number: 2023A294443

PATIENT
  Age: 780 Month
  Sex: Female
  Weight: 63 kg

DRUGS (1)
  1. LYNPARZA [Suspect]
     Active Substance: OLAPARIB
     Indication: Breast cancer
     Route: 048
     Dates: start: 20230103, end: 20231213

REACTIONS (4)
  - Anaemia [Recovering/Resolving]
  - Nausea [Recovered/Resolved]
  - Full blood count abnormal [Unknown]
  - Haematotoxicity [Unknown]

NARRATIVE: CASE EVENT DATE: 20231006
